FAERS Safety Report 4884492-X (Version None)
Quarter: 2005Q4

REPORT INFORMATION
  Report Type: 
  Country: None (occurrence: None)
  Receive Date: 20051201
  Receipt Date: 20050912
  Transmission Date: 20060501
  Serious: No
  Sender: FDA-Public Use
  Company Number: 2005PV002057

PATIENT
  Age: 44 Year
  Sex: Male
  Weight: 156.9446 kg

DRUGS (2)
  1. BYETTA [Suspect]
     Indication: DIABETES MELLITUS NON-INSULIN-DEPENDENT
     Dosage: 5 MCG;BID;SC
     Route: 058
     Dates: start: 20050829
  2. GLUCOPHAGE [Concomitant]

REACTIONS (1)
  - INJECTION SITE IRRITATION [None]
